FAERS Safety Report 13429187 (Version 1)
Quarter: 2017Q2

REPORT INFORMATION
  Report Type: Spontaneous
  Country: US (occurrence: US)
  Receive Date: 20170411
  Receipt Date: 20170411
  Transmission Date: 20170830
  Serious: Yes (Other)
  Sender: FDA-Public Use
  Company Number: US-TEVA-759093USA

PATIENT
  Age: 62 Year
  Sex: Female

DRUGS (5)
  1. COPAXONE [Suspect]
     Active Substance: GLATIRAMER ACETATE
     Route: 065
     Dates: start: 2009, end: 2015
  2. LISINOPRIL. [Concomitant]
     Active Substance: LISINOPRIL
     Indication: HYPERTENSION
  3. PROPOFOL. [Suspect]
     Active Substance: PROPOFOL
     Route: 065
  4. OMEPRAZOLE. [Concomitant]
     Active Substance: OMEPRAZOLE
  5. COPAXONE [Suspect]
     Active Substance: GLATIRAMER ACETATE
     Indication: MULTIPLE SCLEROSIS
     Route: 065
     Dates: start: 2015

REACTIONS (20)
  - Weight increased [Recovered/Resolved]
  - Peau d^orange [Unknown]
  - Nervous system disorder [Recovered/Resolved]
  - Memory impairment [Recovered/Resolved]
  - Gait disturbance [Unknown]
  - Migraine [Recovered/Resolved]
  - Nausea [Recovered/Resolved]
  - Erythema [Not Recovered/Not Resolved]
  - Dyspnoea [Recovered/Resolved]
  - Multiple sclerosis relapse [Unknown]
  - Swelling [Unknown]
  - Sensory loss [Recovered/Resolved]
  - Amnesia [Recovered/Resolved]
  - Chest pain [Not Recovered/Not Resolved]
  - Feeling cold [Recovered/Resolved]
  - Paralysis [Recovered/Resolved]
  - Pruritus [Unknown]
  - Cyanosis [Not Recovered/Not Resolved]
  - Skin disorder [Unknown]
  - Tremor [Recovered/Resolved]

NARRATIVE: CASE EVENT DATE: 2012
